FAERS Safety Report 9693048 (Version 2)
Quarter: 2014Q1

REPORT INFORMATION
  Report Type: Report from Study
  Country: FR (occurrence: FR)
  Receive Date: 20131118
  Receipt Date: 20140317
  Transmission Date: 20141002
  Serious: Yes (Other)
  Sender: FDA-Public Use
  Company Number: PHHO2013FR014923

PATIENT
  Sex: 0

DRUGS (5)
  1. MYFORTIC [Suspect]
     Indication: LIVER TRANSPLANT
     Dosage: 720
     Route: 048
     Dates: start: 20130909
  2. NO TREATMENT RECEIVED [Suspect]
     Indication: LIVER TRANSPLANT
     Dosage: NO TREATMENT
  3. SOLU MEDROL [Concomitant]
     Indication: PROPHYLAXIS AGAINST TRANSPLANT REJECTION
     Dosage: UNK
     Dates: start: 20130908, end: 201309
  4. SOLU MEDROL [Concomitant]
     Dosage: UNK
  5. SIMULECT [Concomitant]
     Indication: PROPHYLAXIS AGAINST TRANSPLANT REJECTION
     Route: 042

REACTIONS (1)
  - Expired drug administered [Recovered/Resolved]
